FAERS Safety Report 18795587 (Version 2)
Quarter: 2021Q1

REPORT INFORMATION
  Report Type: Spontaneous
  Country: CA (occurrence: CA)
  Receive Date: 20210127
  Receipt Date: 20210222
  Transmission Date: 20210419
  Serious: Yes (Hospitalization, Other)
  Sender: FDA-Public Use
  Company Number: CA-GLAXOSMITHKLINE-CA2021AMR013313

PATIENT
  Age: 11 Year
  Sex: Male

DRUGS (54)
  1. CHOLECALCIFEROL [Suspect]
     Active Substance: CHOLECALCIFEROL
     Indication: VITAMIN SUPPLEMENTATION
     Dosage: 200 IU, 1D
     Route: 048
  2. LORAZEPAM. [Suspect]
     Active Substance: LORAZEPAM
     Indication: PAIN MANAGEMENT
     Dosage: 2.0 MG, Z (AS REQUIRED)
     Route: 060
  3. FISH OIL [Suspect]
     Active Substance: FISH OIL
     Indication: PRODUCT USED FOR UNKNOWN INDICATION
     Dosage: 200 MG, 1D
     Route: 048
  4. FLUTICASONE. [Suspect]
     Active Substance: FLUTICASONE
     Indication: CHILD ABUSE
     Dosage: 250 MG, 1D
     Route: 055
  5. GABAPENTIN. [Suspect]
     Active Substance: GABAPENTIN
     Indication: PAIN MANAGEMENT
     Dosage: 600 MG, TID
     Route: 048
  6. PHENOBARBITAL. [Suspect]
     Active Substance: PHENOBARBITAL
     Indication: CHILD ABUSE
     Dosage: 30 MG, BID
     Route: 048
  7. MACROGOL 3350 [Suspect]
     Active Substance: POLYETHYLENE GLYCOL 3350
     Indication: CHILD ABUSE
     Dosage: 30 MG, BID
     Route: 048
  8. SALBUTAMOL [Suspect]
     Active Substance: ALBUTEROL
     Dosage: UNK UNK, Z (AS REQUIRED)
  9. CHOLECALCIFEROL [Suspect]
     Active Substance: CHOLECALCIFEROL
     Indication: CHILD ABUSE
     Dosage: 2000 IU, 1D
     Route: 048
  10. PANTOPRAZOLE [Suspect]
     Active Substance: PANTOPRAZOLE
     Indication: CHILD ABUSE
     Dosage: 40 MG, 1D
     Route: 048
  11. DIMENHYDRINATE. [Suspect]
     Active Substance: DIMENHYDRINATE
     Indication: CONSTIPATION
     Dosage: 25 MG, 1D
     Route: 048
  12. METHOCARBAMOL. [Suspect]
     Active Substance: METHOCARBAMOL
     Indication: CHILD ABUSE
     Dosage: 2 DF, QD
     Route: 048
  13. POLYETHYLENE GLYCOL [Suspect]
     Active Substance: POLYETHYLENE GLYCOLS
     Indication: PRODUCT USED FOR UNKNOWN INDICATION
     Dosage: 30 MG, BID
     Route: 048
  14. VITAMIN C [Suspect]
     Active Substance: ASCORBIC ACID
     Indication: PRODUCT USED FOR UNKNOWN INDICATION
     Dosage: 1500 MG, QD
     Route: 048
  15. BISACODYL. [Suspect]
     Active Substance: BISACODYL
     Dosage: 5 MG, Z
     Route: 048
  16. KETOROLAC [Suspect]
     Active Substance: KETOROLAC TROMETHAMINE
     Indication: PAIN
     Dosage: 20 MG, QID
     Route: 048
  17. KETOROLAC [Suspect]
     Active Substance: KETOROLAC TROMETHAMINE
     Indication: CHILD ABUSE
  18. METHADONE [Suspect]
     Active Substance: METHADONE HYDROCHLORIDE
     Indication: CHILD ABUSE
     Dosage: 2 MG, TID
     Route: 048
  19. DIPHENHYDRAMINE. [Suspect]
     Active Substance: DIPHENHYDRAMINE
     Indication: PRURITUS
     Dosage: 12.5 MG, QID
     Route: 048
  20. FLUOXETINE [Suspect]
     Active Substance: FLUOXETINE HYDROCHLORIDE
     Indication: CHILD ABUSE
     Dosage: 20 MG, 1D
     Route: 048
  21. ASCORBIC ACID. [Suspect]
     Active Substance: ASCORBIC ACID
     Indication: PRODUCT USED FOR UNKNOWN INDICATION
     Dosage: 1500 MG, 1D
     Route: 048
  22. ARIPIPRAZOLE. [Suspect]
     Active Substance: ARIPIPRAZOLE
     Indication: CHILD ABUSE
     Dosage: 2 MG, TID
     Route: 048
  23. LEUPROLIDE [Suspect]
     Active Substance: LEUPROLIDE
     Indication: PRODUCT USED FOR UNKNOWN INDICATION
     Dosage: 7.5 MG, Z (1 EVERY 1 MONTH)
     Route: 030
  24. FLUOXETINE [Suspect]
     Active Substance: FLUOXETINE HYDROCHLORIDE
     Indication: PRODUCT USED FOR UNKNOWN INDICATION
     Dosage: 20 MG, 1D
     Route: 048
  25. HYDROXYCHLOROQUINE [Suspect]
     Active Substance: HYDROXYCHLOROQUINE
     Indication: CHILD ABUSE
     Dosage: 400 MG, 1D
     Route: 048
  26. SALBUTAMOL [Suspect]
     Active Substance: ALBUTEROL
     Indication: CHILD ABUSE
     Dosage: 100 MG, 6D
     Route: 055
  27. CLONIDINE. [Suspect]
     Active Substance: CLONIDINE
     Indication: CHILD ABUSE
     Dosage: 0.1 MG, 1D
     Route: 048
  28. DIMENHYDRINATE. [Suspect]
     Active Substance: DIMENHYDRINATE
     Indication: CHILD ABUSE
     Dosage: 25 MG, Z
  29. DIPHENHYDRAMINE. [Suspect]
     Active Substance: DIPHENHYDRAMINE
     Indication: CHILD ABUSE
  30. LEUPRORELIN [Suspect]
     Active Substance: LEUPROLIDE ACETATE
     Indication: CHILD ABUSE
     Dosage: 7.5 MG, Z (1 EVERY 30 DAYS)
     Route: 030
  31. ASCORBIC ACID. [Suspect]
     Active Substance: ASCORBIC ACID
     Indication: CHILD ABUSE
  32. LORAZEPAM. [Suspect]
     Active Substance: LORAZEPAM
     Indication: MUSCLE SPASMS
     Dosage: UNK UNK, Z (AS REQUIRED)
     Route: 060
  33. LORAZEPAM. [Suspect]
     Active Substance: LORAZEPAM
     Indication: CHILD ABUSE
  34. MONTELUKAST [Suspect]
     Active Substance: MONTELUKAST SODIUM
     Indication: CHILD ABUSE
     Dosage: 10 MG, 1D
     Route: 048
  35. CELECOXIB. [Suspect]
     Active Substance: CELECOXIB
     Indication: PAIN MANAGEMENT
     Dosage: 100 MG, BID
     Route: 048
  36. CLOBAZAM. [Suspect]
     Active Substance: CLOBAZAM
     Indication: CHILD ABUSE
     Dosage: 20 MG, BID
     Route: 048
  37. MELATONIN [Suspect]
     Active Substance: MELATONIN
     Indication: CHILD ABUSE
  38. ACETAMINOPHEN + METHOCARBAMOL [Suspect]
     Active Substance: ACETAMINOPHEN\METHOCARBAMOL
     Indication: CHILD ABUSE
     Dosage: 2 DF, QD
     Route: 048
  39. SALBUTAMOL [Suspect]
     Active Substance: ALBUTEROL
     Dosage: 2 DF, 6D
     Route: 055
  40. BISACODYL. [Suspect]
     Active Substance: BISACODYL
     Indication: CHILD ABUSE
     Dosage: 5 MG, 1D
     Route: 048
  41. LORAZEPAM. [Suspect]
     Active Substance: LORAZEPAM
     Indication: SEIZURE
     Dosage: 0.5 MG, Z (AS REQUIRED)
     Route: 060
  42. RANITIDINE. [Suspect]
     Active Substance: RANITIDINE
     Indication: CHILD ABUSE
     Dosage: 150 MG, 1D
     Route: 048
  43. FLUTICASONE PROPIONATE. [Suspect]
     Active Substance: FLUTICASONE PROPIONATE
     Indication: PRODUCT USED FOR UNKNOWN INDICATION
     Dosage: UNK
  44. VITAMIN D3 [Suspect]
     Active Substance: CHOLECALCIFEROL
     Indication: CHILD ABUSE
     Dosage: 2000 IU, QD
     Route: 048
  45. BACLOFEN. [Suspect]
     Active Substance: BACLOFEN
     Indication: CHILD ABUSE
     Dosage: 20 MG, TID
     Route: 048
  46. CELECOXIB. [Suspect]
     Active Substance: CELECOXIB
     Indication: CHILD ABUSE
  47. CLONIDINE. [Suspect]
     Active Substance: CLONIDINE
     Dosage: 0.05 MG, 1D
     Route: 048
  48. DIMENHYDRINATE. [Suspect]
     Active Substance: DIMENHYDRINATE
     Dosage: 12.5 MG, QID
     Route: 048
  49. TYLENOL [Suspect]
     Active Substance: ACETAMINOPHEN
     Indication: PRODUCT USED FOR UNKNOWN INDICATION
     Dosage: 400 MG, BID
  50. FLUTICASONE. [Suspect]
     Active Substance: FLUTICASONE
     Dosage: 2.0 DF, 1D
     Route: 055
  51. GABAPENTIN. [Suspect]
     Active Substance: GABAPENTIN
     Indication: CHILD ABUSE
  52. HYDROMORPHONE [Suspect]
     Active Substance: HYDROMORPHONE
     Indication: PAIN MANAGEMENT
     Dosage: UNK
  53. HYDROMORPHONE [Suspect]
     Active Substance: HYDROMORPHONE
     Indication: CHILD ABUSE
  54. MELATONIN [Suspect]
     Active Substance: MELATONIN
     Indication: SLEEP DEFICIT
     Dosage: 10 MG, 1D
     Route: 048

REACTIONS (8)
  - Drug abuse [Recovered/Resolved]
  - Respiratory depression [Recovered/Resolved]
  - Victim of child abuse [Recovered/Resolved]
  - Intentional product misuse [Recovered/Resolved]
  - Drug dependence [Recovered/Resolved]
  - Child abuse [Recovered/Resolved]
  - Drug ineffective [Recovered/Resolved]
  - Product prescribing error [Recovered/Resolved]
